FAERS Safety Report 4308164-5 (Version None)
Quarter: 2004Q1

REPORT INFORMATION
  Report Type: 
  Country: None (occurrence: None)
  Receive Date: 20040301
  Receipt Date: 20030711
  Transmission Date: 20041129
  Serious: No
  Sender: FDA-Public Use
  Company Number: US-BRISTOL-MYERS SQUIBB COMPANY-12325197

PATIENT
  Age: 65 Year
  Sex: Female
  Weight: 82 kg

DRUGS (5)
  1. GLUCOPHAGE [Suspect]
     Indication: DIABETES MELLITUS NON-INSULIN-DEPENDENT
  2. GLUCOTROL XL [Concomitant]
  3. PREMARIN [Concomitant]
  4. LASIX [Concomitant]
  5. REGULAR INSULIN [Concomitant]
     Dosage: 12 UNITS IN THE AM AND 12 UNITS IN THE PM

REACTIONS (1)
  - DRUG INEFFECTIVE [None]
